FAERS Safety Report 8184728-6 (Version None)
Quarter: 2012Q1

REPORT INFORMATION
  Report Type: 
  Country: None (occurrence: None)
  Receive Date: 20120305
  Receipt Date: 20120305
  Transmission Date: 20120608
  Serious: Yes (Hospitalization)
  Sender: FDA-Public Use
  Company Number: None

PATIENT
  Age: 69 Year
  Sex: Female

DRUGS (2)
  1. RANITIDINE [Concomitant]
  2. ANCEF [Suspect]

REACTIONS (1)
  - HAEMOLYTIC ANAEMIA [None]
